FAERS Safety Report 7659679-3 (Version None)
Quarter: 2011Q3

REPORT INFORMATION
  Report Type: 
  Country: None (occurrence: None)
  Receive Date: 20110805
  Receipt Date: 20110512
  Transmission Date: 20111222
  Serious: Yes (Other)
  Sender: FDA-Public Use
  Company Number: PHHY2011FI31730

PATIENT
  Sex: Male

DRUGS (19)
  1. CLOZAPINE [Suspect]
     Indication: MAJOR DEPRESSION
     Dosage: 200 MG, UNK
     Dates: start: 20080331, end: 20110407
  2. ESCITALOPRAM [Concomitant]
     Dosage: 20MG IN THE MORNING
     Dates: start: 20081106
  3. CETIRIZINE HCL [Concomitant]
     Dosage: TO 10MG IN THE MORNING AND EVENING
     Dates: start: 20091210, end: 20091220
  4. OBSIDAN [Concomitant]
  5. SIMVASTATIN [Concomitant]
     Dosage: UNK
     Dates: start: 20090528
  6. ELOCON [Concomitant]
     Indication: RASH
     Dosage: IN THE MORNINGS AND EVENINGS
     Dates: start: 20110401, end: 20110423
  7. DESMOPRESSIN ACETATE [Suspect]
     Indication: INCONTINENCE
     Dosage: UNK
     Dates: start: 20090526, end: 20110302
  8. ATENBLOCK [Concomitant]
     Dosage: DOSE 50MG IN THE MORNING AND EVENING
     Dates: start: 20080331
  9. PRIMASPAN [Concomitant]
     Dosage: DOSE 100MG IN THE MORNING
     Dates: start: 20080331
  10. NORTRIPTYLINE HCL [Concomitant]
     Dosage: 50MG
     Dates: start: 20080922
  11. ELOCON [Concomitant]
     Dosage: TWICE A WEEK
     Dates: start: 20110423
  12. KEFEXIN [Concomitant]
     Dosage: DOSE 500MG IN THE MORNING, DAY AND EVENING
     Dates: start: 20110401, end: 20110408
  13. DESMOPRESSIN ACETATE [Suspect]
     Indication: BENIGN PROSTATIC HYPERPLASIA
     Dosage: 120 UG,
     Dates: start: 20110406, end: 20110407
  14. LORAZEPAM [Concomitant]
     Dosage: 0.5-1MG UNK
     Dates: start: 20081016
  15. CETIRIZINE HCL [Concomitant]
     Dosage: TO 10MG IN THE MORNING
  16. LOSARTAN POTASSIUM AND HYDROCHLOROTHIAZIDE [Concomitant]
     Dosage: HALF TABLET OF 12.5MG IN THE MORNING
     Dates: start: 20101001
  17. RANIXAL [Concomitant]
     Dosage: 300MG IN THE EVENING
     Dates: start: 20080526
  18. NITROFUR-C [Concomitant]
     Dosage: 20MG IN THE MORNING
     Dates: start: 20090528, end: 20110112
  19. ERMYSIN [Concomitant]
     Dosage: DOSE 500MG IN THE MORNING AND EVENING
     Dates: start: 20091210

REACTIONS (10)
  - HAEMATOCRIT DECREASED [None]
  - WHITE BLOOD CELL COUNT DECREASED [None]
  - NEUTROPHIL COUNT DECREASED [None]
  - DRUG INTERACTION [None]
  - BLOOD SODIUM DECREASED [None]
  - INCONTINENCE [None]
  - HAEMOGLOBIN DECREASED [None]
  - LEUKOPENIA [None]
  - MEAN CELL VOLUME DECREASED [None]
  - BASOPHIL COUNT INCREASED [None]
